FAERS Safety Report 8950335 (Version 1)
Quarter: 2012Q4

REPORT INFORMATION
  Report Type: Spontaneous
  Country: US (occurrence: None)
  Receive Date: 20121130
  Receipt Date: 20121130
  Transmission Date: 20130627
  Serious: Yes (Life-Threatening, Hospitalization)
  Sender: FDA-Public Use
  Company Number: None

PATIENT
  Age: 34 Year
  Sex: Female
  Weight: 95.26 kg

DRUGS (1)
  1. LATUDA [Suspect]
     Indication: SCHIZOAFFECTIVE DISORDER
     Dosage: once a day
     Route: 048
     Dates: start: 20121107, end: 20121116

REACTIONS (3)
  - Laceration [None]
  - Intentional overdose [None]
  - Suicide attempt [None]
